FAERS Safety Report 9539624 (Version 1)
Quarter: 2013Q3

REPORT INFORMATION
  Report Type: Spontaneous
  Country: US (occurrence: US)
  Receive Date: 20130920
  Receipt Date: 20130920
  Transmission Date: 20140515
  Serious: Yes (Hospitalization, Other)
  Sender: FDA-Public Use
  Company Number: US-PFIZER INC-2013270731

PATIENT
  Age: 64 Year
  Sex: Female
  Weight: 86.17 kg

DRUGS (2)
  1. EFFEXOR XR [Suspect]
     Indication: DEPRESSION
     Dosage: 75 MG, 3X/DAY
     Route: 048
     Dates: end: 20120130
  2. HYDROCHLOROTHIAZIDE [Concomitant]
     Dosage: UNK

REACTIONS (5)
  - Dehydration [Recovered/Resolved]
  - Malaise [Unknown]
  - Fall [Unknown]
  - Gastrooesophageal reflux disease [Not Recovered/Not Resolved]
  - Crying [Unknown]
